FAERS Safety Report 18299198 (Version 4)
Quarter: 2020Q4

REPORT INFORMATION
  Report Type: Report from Study
  Country: AU (occurrence: AU)
  Receive Date: 20200922
  Receipt Date: 20201209
  Transmission Date: 20210113
  Serious: Yes (Other)
  Sender: FDA-Public Use
  Company Number: AU-REGENERON PHARMACEUTICALS, INC.-2020-77125

PATIENT

DRUGS (9)
  1. EYLEA [Suspect]
     Active Substance: AFLIBERCEPT
     Dosage: 1 DF TO LEFT EYE
     Route: 031
     Dates: start: 20191022, end: 20191022
  2. EYLEA [Suspect]
     Active Substance: AFLIBERCEPT
     Dosage: 1 DF TO LEFT EYE
     Route: 031
     Dates: start: 20200527, end: 20200527
  3. EYLEA [Suspect]
     Active Substance: AFLIBERCEPT
     Dosage: 1 DF TO LEFT EYE
     Route: 031
     Dates: start: 20200128, end: 20200128
  4. EYLEA [Suspect]
     Active Substance: AFLIBERCEPT
     Dosage: 1 DF TO LEFT EYE
     Route: 031
     Dates: start: 20190812, end: 20190812
  5. EYLEA [Suspect]
     Active Substance: AFLIBERCEPT
     Dosage: 1 DF TO LEFT EYE
     Route: 031
     Dates: start: 20191218, end: 20191218
  6. EYLEA [Suspect]
     Active Substance: AFLIBERCEPT
     Dosage: 1 DF TO LEFT EYE
     Route: 031
     Dates: start: 20200722, end: 20200722
  7. EYLEA [Suspect]
     Active Substance: AFLIBERCEPT
     Dosage: 1 DF TO LEFT EYE
     Route: 031
     Dates: start: 20200401, end: 20200401
  8. EYLEA [Suspect]
     Active Substance: AFLIBERCEPT
     Indication: NEOVASCULAR AGE-RELATED MACULAR DEGENERATION
     Dosage: 1 DF TO LEFT EYE
     Route: 031
     Dates: start: 20181211, end: 20181211
  9. EYLEA [Suspect]
     Active Substance: AFLIBERCEPT
     Dosage: 1 DF TO LEFT EYE
     Route: 031
     Dates: start: 20190715, end: 20190715

REACTIONS (7)
  - Glaucoma [Not Recovered/Not Resolved]
  - Visual impairment [Not Recovered/Not Resolved]
  - Balance disorder [Unknown]
  - Intentional dose omission [Unknown]
  - Drug ineffective [Unknown]
  - Cataract [Not Recovered/Not Resolved]
  - Eye disorder [Unknown]
